FAERS Safety Report 16933664 (Version 1)
Quarter: 2019Q4

REPORT INFORMATION
  Report Type: Spontaneous
  Country: US (occurrence: US)
  Receive Date: 20191018
  Receipt Date: 20191018
  Transmission Date: 20200122
  Serious: Yes (Other)
  Sender: FDA-Public Use
  Company Number: US-TEVA-2019-US-1123238

PATIENT
  Sex: Female
  Weight: 89.89 kg

DRUGS (4)
  1. ACYCLOVIR. [Suspect]
     Active Substance: ACYCLOVIR
     Dosage: 1 DAILY
     Route: 065
  2. JANUMET [Suspect]
     Active Substance: METFORMIN HYDROCHLORIDE\SITAGLIPTIN PHOSPHATE
     Dosage: 50/100:  1 DAILY
     Route: 065
  3. IRBESARTAN. [Suspect]
     Active Substance: IRBESARTAN
     Indication: HYPERTENSION
     Dosage: 150/12.5: 1XDAILY
     Route: 065
     Dates: start: 2015
  4. ROSUVASTATIN. [Suspect]
     Active Substance: ROSUVASTATIN
     Dosage: 1 DAILY
     Route: 065

REACTIONS (2)
  - Rheumatoid arthritis [Not Recovered/Not Resolved]
  - Spinal stenosis [Unknown]

NARRATIVE: CASE EVENT DATE: 2016
